FAERS Safety Report 12201711 (Version 1)
Quarter: 2016Q1

REPORT INFORMATION
  Report Type: Spontaneous
  Country: US (occurrence: US)
  Receive Date: 20160322
  Receipt Date: 20160322
  Transmission Date: 20160526
  Serious: No
  Sender: FDA-Public Use
  Company Number: US-SA-2016SA000729

PATIENT
  Age: 79 Year
  Sex: Male

DRUGS (2)
  1. TRIAMCINOLONE ACETONIDE. [Suspect]
     Active Substance: TRIAMCINOLONE ACETONIDE
     Indication: PRODUCTIVE COUGH
     Dosage: DOSE : 55MCG 2 EACH NARE,  START DATE: WEEK AND HALF AGO
     Route: 045
  2. TRIAMCINOLONE ACETONIDE. [Suspect]
     Active Substance: TRIAMCINOLONE ACETONIDE
     Indication: NASAL CONGESTION
     Dosage: DOSE : 55MCG 2 EACH NARE,  START DATE: WEEK AND HALF AGO
     Route: 045

REACTIONS (1)
  - Drug ineffective [Unknown]
